FAERS Safety Report 17460925 (Version 2)
Quarter: 2020Q1

REPORT INFORMATION
  Report Type: Spontaneous
  Country: HR (occurrence: HR)
  Receive Date: 20200226
  Receipt Date: 20200304
  Transmission Date: 20200409
  Serious: Yes (Death)
  Sender: FDA-Public Use
  Company Number: HR-ELI_LILLY_AND_COMPANY-HR202002010675

PATIENT
  Age: 45 Year
  Sex: Female

DRUGS (1)
  1. VERZENIO [Suspect]
     Active Substance: ABEMACICLIB
     Indication: BREAST CANCER METASTATIC
     Dosage: 150 MG, UNKNOWN
     Route: 065
     Dates: start: 20200113

REACTIONS (1)
  - Death [Fatal]

NARRATIVE: CASE EVENT DATE: 20200208
